FAERS Safety Report 5448259-6 (Version None)
Quarter: 2007Q3

REPORT INFORMATION
  Report Type: 
  Country: None (occurrence: None)
  Receive Date: 20070911
  Receipt Date: 20070905
  Transmission Date: 20080115
  Serious: Yes (Life-Threatening, Hospitalization, Other)
  Sender: FDA-Public Use
  Company Number: PHFR2007GB02072

PATIENT
  Age: 81 Year
  Sex: Female

DRUGS (8)
  1. GLEEVEC [Suspect]
     Indication: CHRONIC MYELOID LEUKAEMIA
     Dosage: 400MG
     Route: 048
     Dates: start: 20070619
  2. DOXAZOSIN MESYLATE [Concomitant]
     Indication: HYPERTENSION
     Dosage: 4 MG/DAY
     Route: 048
     Dates: start: 20070622
  3. FRUSEMIDE [Concomitant]
     Indication: AORTIC VALVE INCOMPETENCE
     Route: 048
     Dates: start: 20070622
  4. ASPIRIN [Concomitant]
     Indication: TRANSIENT ISCHAEMIC ATTACK
     Dosage: 75 MG/DAY
     Route: 048
     Dates: start: 20070622
  5. ALLOPURINOL [Concomitant]
     Indication: CHRONIC MYELOID LEUKAEMIA
     Dosage: 300 MG/DAY
     Route: 048
     Dates: start: 20070622
  6. AMIODARONE [Concomitant]
     Indication: ATRIAL FLUTTER
     Dosage: 200 MG/DAY
     Route: 048
     Dates: start: 20070622
  7. BISOPROLOL [Concomitant]
     Indication: ATRIAL FLUTTER
     Dosage: 1.25 MG/DAY
     Route: 048
     Dates: start: 20070622
  8. CYCLIZINE [Concomitant]
     Indication: NAUSEA
     Dosage: 50 MG, TID
     Route: 048
     Dates: start: 20070622

REACTIONS (5)
  - CARDIAC ARREST [None]
  - CONVULSION [None]
  - HYPERTENSION [None]
  - NAUSEA [None]
  - RESPIRATORY ARREST [None]
